FAERS Safety Report 10600940 (Version 2)
Quarter: 2014Q4

REPORT INFORMATION
  Report Type: Spontaneous
  Country: US (occurrence: None)
  Receive Date: 20141120
  Receipt Date: 20141209
  Transmission Date: 20150529
  Serious: Yes (Other)
  Sender: FDA-Public Use
  Company Number: 2014-US-014813

PATIENT
  Age: 16 Year
  Sex: Male
  Weight: 70.3 kg

DRUGS (9)
  1. TUMS (CALCIUM CARBONATE, MAGNESIUM CARBONATE, MAGNESIUM TRISILICATE) [Concomitant]
  2. ALLEGRA (FEXOFENADINE HYDROCHLORIDE) [Concomitant]
  3. DEPAKOTE [Concomitant]
     Active Substance: DIVALPROEX SODIUM
  4. STRATTERA (ATOMOXETINE HYDROCHLORIDE) [Concomitant]
  5. CYMBALTA [Concomitant]
     Active Substance: DULOXETINE HYDROCHLORIDE
  6. IMITREX [Concomitant]
     Active Substance: SUMATRIPTAN\SUMATRIPTAN SUCCINATE
  7. XYREM [Suspect]
     Active Substance: SODIUM OXYBATE
     Indication: CATAPLEXY
     Route: 048
     Dates: start: 201307, end: 201308
  8. XYREM [Suspect]
     Active Substance: SODIUM OXYBATE
     Indication: NARCOLEPSY
     Route: 048
     Dates: start: 201307, end: 201308
  9. SINGULAIR (MONTELUKAST SODIUM) [Concomitant]

REACTIONS (16)
  - Loss of consciousness [None]
  - Speech disorder [None]
  - Muscle tightness [None]
  - Off label use [None]
  - Emotional distress [None]
  - Aphasia [None]
  - Joint stiffness [None]
  - Disorientation [None]
  - Heart rate decreased [None]
  - Oxygen saturation decreased [None]
  - Amnesia [None]
  - Paralysis [None]
  - Fall [None]
  - Syncope [None]
  - Gait disturbance [None]
  - Musculoskeletal stiffness [None]

NARRATIVE: CASE EVENT DATE: 2014
